FAERS Safety Report 17275188 (Version 6)
Quarter: 2024Q1

REPORT INFORMATION
  Report Type: Report from Study
  Country: US (occurrence: US)
  Receive Date: 20200116
  Receipt Date: 20240304
  Transmission Date: 20240410
  Serious: Yes (Hospitalization, Other)
  Sender: FDA-Public Use
  Company Number: US-SHIRE-US202001246

PATIENT
  Sex: Male
  Weight: 113.38 kg

DRUGS (32)
  1. .ALPHA.1-PROTEINASE INHIBITOR HUMAN [Suspect]
     Active Substance: .ALPHA.1-PROTEINASE INHIBITOR HUMAN
     Indication: Alpha-1 antitrypsin deficiency
     Dosage: UNK UNK, Q2WEEKS
     Route: 042
     Dates: start: 20070927
  2. .ALPHA.1-PROTEINASE INHIBITOR HUMAN [Suspect]
     Active Substance: .ALPHA.1-PROTEINASE INHIBITOR HUMAN
     Indication: Alpha-1 antitrypsin deficiency
     Dosage: UNK UNK, Q2WEEKS
     Route: 042
     Dates: start: 20070927
  3. .ALPHA.1-PROTEINASE INHIBITOR HUMAN [Suspect]
     Active Substance: .ALPHA.1-PROTEINASE INHIBITOR HUMAN
     Dosage: 14105 MILLIGRAM, Q2WEEKS
     Route: 042
     Dates: start: 20071001
  4. .ALPHA.1-PROTEINASE INHIBITOR HUMAN [Suspect]
     Active Substance: .ALPHA.1-PROTEINASE INHIBITOR HUMAN
     Dosage: 14105 MILLIGRAM, Q2WEEKS
     Route: 042
     Dates: start: 20071001
  5. .ALPHA.1-PROTEINASE INHIBITOR HUMAN [Suspect]
     Active Substance: .ALPHA.1-PROTEINASE INHIBITOR HUMAN
     Dosage: UNK UNK, Q2WEEKS
     Route: 042
  6. .ALPHA.1-PROTEINASE INHIBITOR HUMAN [Suspect]
     Active Substance: .ALPHA.1-PROTEINASE INHIBITOR HUMAN
     Dosage: UNK UNK, Q2WEEKS
     Route: 042
  7. .ALPHA.1-PROTEINASE INHIBITOR HUMAN [Suspect]
     Active Substance: .ALPHA.1-PROTEINASE INHIBITOR HUMAN
     Dosage: UNK UNK, Q2WEEKS
     Route: 042
     Dates: start: 20071101
  8. .ALPHA.1-PROTEINASE INHIBITOR HUMAN [Suspect]
     Active Substance: .ALPHA.1-PROTEINASE INHIBITOR HUMAN
     Dosage: UNK UNK, Q2WEEKS
     Route: 042
     Dates: start: 20071101
  9. VICKS NYQUIL [Concomitant]
     Active Substance: ACETAMINOPHEN\DEXTROMETHORPHAN HYDROBROMIDE\DOXYLAMINE SUCCINATE
  10. DIPHENHYDRAMINE [Concomitant]
     Active Substance: DIPHENHYDRAMINE
  11. SODIUM CHLORIDE [Concomitant]
     Active Substance: SODIUM CHLORIDE
  12. EPINEPHRINE [Concomitant]
     Active Substance: EPINEPHRINE
  13. AUGMENTIN [Concomitant]
     Active Substance: AMOXICILLIN\CLAVULANATE POTASSIUM
  14. METRONIDAZOLE [Concomitant]
     Active Substance: METRONIDAZOLE
  15. LEVAQUIN [Concomitant]
     Active Substance: LEVOFLOXACIN
  16. BENTYL [Concomitant]
     Active Substance: DICYCLOMINE HYDROCHLORIDE
  17. AMLODIPINE [Concomitant]
     Active Substance: AMLODIPINE BESYLATE
  18. LOSARTAN [Concomitant]
     Active Substance: LOSARTAN
  19. CARVEDILOL [Concomitant]
     Active Substance: CARVEDILOL
  20. TRAZODONE [Concomitant]
     Active Substance: TRAZODONE HYDROCHLORIDE
  21. NORCO [Concomitant]
     Active Substance: ACETAMINOPHEN\HYDROCODONE BITARTRATE
  22. SYMBICORT [Concomitant]
     Active Substance: BUDESONIDE\FORMOTEROL FUMARATE DIHYDRATE
  23. ACETAMINOPHEN [Concomitant]
     Active Substance: ACETAMINOPHEN
  24. TAMIFLU [Concomitant]
     Active Substance: OSELTAMIVIR PHOSPHATE
  25. POTASSIUM [Concomitant]
     Active Substance: POTASSIUM
  26. AMLODIPINE BESYLATE [Concomitant]
     Active Substance: AMLODIPINE BESYLATE
  27. TRAZODONE HCL [Concomitant]
     Active Substance: TRAZODONE HYDROCHLORIDE
  28. LOSARTAN POTASSIUM [Concomitant]
     Active Substance: LOSARTAN POTASSIUM
  29. PROAIR HFA [Concomitant]
     Active Substance: ALBUTEROL SULFATE
  30. DICYCLOMINE HYDROCHLORIDE [Concomitant]
     Active Substance: DICYCLOMINE HYDROCHLORIDE
     Dosage: UNK
  31. DIPHENHYDRAMINE HYDROCHLORIDE [Concomitant]
     Active Substance: DIPHENHYDRAMINE HYDROCHLORIDE
     Dosage: UNK
  32. SPIRIVA [Concomitant]
     Active Substance: TIOTROPIUM BROMIDE MONOHYDRATE
     Dosage: UNK

REACTIONS (6)
  - Influenza [Unknown]
  - Lower respiratory tract infection [Unknown]
  - Nasopharyngitis [Recovering/Resolving]
  - Aphonia [Unknown]
  - Infusion related reaction [Unknown]
  - Hypersensitivity [Unknown]
